FAERS Safety Report 7141019-X (Version None)
Quarter: 2010Q4

REPORT INFORMATION
  Report Type: 
  Country: None (occurrence: None)
  Receive Date: 20101207
  Receipt Date: 20101202
  Transmission Date: 20110411
  Serious: Yes (Disabling)
  Sender: FDA-Public Use
  Company Number: GB-TEVA-258183ISR

PATIENT
  Age: 62 Year
  Sex: Female
  Weight: 117 kg

DRUGS (1)
  1. METFORMIN [Suspect]
     Indication: DIABETES MELLITUS
     Route: 048
     Dates: end: 20100929

REACTIONS (1)
  - FAECAL INCONTINENCE [None]
